FAERS Safety Report 5386762-8 (Version None)
Quarter: 2007Q3

REPORT INFORMATION
  Report Type: 
  Country: None (occurrence: None)
  Receive Date: 20070713
  Receipt Date: 20061206
  Transmission Date: 20080115
  Serious: Yes (Hospitalization)
  Sender: FDA-Public Use
  Company Number: US-ASTRAZENECA-2006UW27142

PATIENT
  Age: 39 Year
  Sex: Male
  Weight: 79.4 kg

DRUGS (4)
  1. SEROQUEL [Suspect]
     Indication: BIPOLAR DISORDER
     Route: 048
     Dates: start: 20060601
  2. SEROQUEL [Suspect]
     Route: 048
     Dates: start: 20060601
  3. DEPAKOTE [Concomitant]
  4. INDERAL [Concomitant]

REACTIONS (3)
  - INCORRECT DOSE ADMINISTERED [None]
  - MANIA [None]
  - SOMNOLENCE [None]
